FAERS Safety Report 11364474 (Version 1)
Quarter: 2015Q3

REPORT INFORMATION
  Report Type: Spontaneous
  Country: DE (occurrence: DE)
  Receive Date: 20150811
  Receipt Date: 20150811
  Transmission Date: 20151125
  Serious: Yes (Other)
  Sender: FDA-Public Use
  Company Number: DE-SUN PHARMACEUTICAL INDUSTRIES LTD-2015RR-101351

PATIENT

DRUGS (6)
  1. ASS 100 [Concomitant]
     Active Substance: ASPIRIN
     Indication: PROPHYLAXIS
     Dosage: 100 MG, DAILY, LONG TERM EXPOSURE
     Route: 064
  2. PERAZINE [Suspect]
     Active Substance: PERAZINE
     Indication: ANXIETY DISORDER
     Dosage: 200 MG, DAILY, FROM 0-35.5 GESTATIONAL WEEK
     Route: 064
     Dates: start: 20131215, end: 20140822
  3. CLEXANE 40 [Concomitant]
     Indication: FACTOR V DEFICIENCY
     Dosage: 40 MG, DAILY, LONG TERM EXPOSURE
     Route: 064
  4. VENLAFAXINE [Suspect]
     Active Substance: VENLAFAXINE HYDROCHLORIDE
     Indication: DEPRESSION
     Dosage: 300 MG, DAILY, FROM 0-35.5 GESTATIONAL WEEK
     Route: 064
     Dates: start: 20131215, end: 20140822
  5. L-THYROXIN [Concomitant]
     Active Substance: LEVOTHYROXINE SODIUM
     Indication: HYPOTHYROIDISM
     Dosage: 175 ?G, DAILY, FROM 0-35.5 GESTATIONAL WEEK
     Route: 064
     Dates: start: 20131215, end: 20140822
  6. FOLSAURE [Concomitant]
     Active Substance: FOLIC ACID
     Indication: PROPHYLAXIS OF NEURAL TUBE DEFECT
     Dosage: FROM 0-35.5 GESTATIONAL WEEK
     Route: 064
     Dates: start: 20131215, end: 20140822

REACTIONS (6)
  - Maternal drugs affecting foetus [None]
  - Premature baby [None]
  - Caesarean section [None]
  - Convulsion neonatal [None]
  - Seizure [Recovered/Resolved]
  - Respiratory disorder neonatal [Recovered/Resolved]

NARRATIVE: CASE EVENT DATE: 20140822
